FAERS Safety Report 5089146-5 (Version None)
Quarter: 2006Q3

REPORT INFORMATION
  Report Type: 
  Country: None (occurrence: None)
  Receive Date: 20060727
  Receipt Date: 20060620
  Transmission Date: 20061208
  Serious: Yes (Other)
  Sender: FDA-Public Use
  Company Number: 2006070158

PATIENT
  Age: 85 Year
  Sex: Male
  Weight: 74.8435 kg

DRUGS (3)
  1. LYRICA [Suspect]
     Indication: HERPES ZOSTER
     Dosage: 200 MG (DAILY), UNKNOWN
     Dates: start: 20060101
  2. WARFARIN SODIUM [Concomitant]
  3. CRESTOR [Concomitant]

REACTIONS (3)
  - HERPES ZOSTER [None]
  - PAIN [None]
  - VISION BLURRED [None]
